FAERS Safety Report 7343093-4 (Version None)
Quarter: 2011Q1

REPORT INFORMATION
  Report Type: 
  Country: None (occurrence: None)
  Receive Date: 20110310
  Receipt Date: 20110302
  Transmission Date: 20110831
  Serious: Yes (Other)
  Sender: FDA-Public Use
  Company Number: US-US-EMD SERONO, INC.-7045420

PATIENT
  Sex: Female
  Weight: 97 kg

DRUGS (7)
  1. REBIF [Suspect]
     Indication: PRODUCT USED FOR UNKNOWN INDICATION
     Route: 058
     Dates: start: 20020820
  2. BUMETIDINE [Concomitant]
     Indication: HYPERTENSION
  3. ATENOLOL [Concomitant]
     Indication: HYPERTENSION
  4. WELLBUTRIN [Concomitant]
     Indication: DEPRESSION
  5. REMERON [Concomitant]
     Indication: DEPRESSION
  6. ALDACTONE [Concomitant]
     Indication: HYPERTENSION
  7. SOLU-MEDROL [Concomitant]

REACTIONS (5)
  - DIABETES MELLITUS [None]
  - INJECTION SITE INFECTION [None]
  - INJECTION SITE WARMTH [None]
  - BLOOD CHOLESTEROL INCREASED [None]
  - INJECTION SITE PAIN [None]
